FAERS Safety Report 6900164-1 (Version None)
Quarter: 2010Q3

REPORT INFORMATION
  Report Type: 
  Country: None (occurrence: None)
  Receive Date: 20100803
  Receipt Date: 20100722
  Transmission Date: 20110219
  Serious: Yes (Other)
  Sender: FDA-Public Use
  Company Number: IE-WYE-H16442710

PATIENT
  Age: 28 Year
  Sex: Male

DRUGS (3)
  1. PROTIUM [Suspect]
     Indication: GASTROINTESTINAL DISORDER
     Route: 048
     Dates: start: 20100622, end: 20100101
  2. CIPRAMIL [Concomitant]
     Indication: DEPRESSION
     Dosage: UNSPECIFIED
     Route: 065
  3. RAMIPRIL [Concomitant]
     Indication: BLOOD PRESSURE INCREASED
     Dosage: UNSPECIFIED
     Route: 065

REACTIONS (4)
  - CHEST PAIN [None]
  - HYPERHIDROSIS [None]
  - HYPERTENSION [None]
  - TACHYCARDIA [None]
